FAERS Safety Report 4318936-9 (Version None)
Quarter: 2004Q1

REPORT INFORMATION
  Report Type: 
  Country: None (occurrence: None)
  Receive Date: 20040317
  Receipt Date: 20040317
  Transmission Date: 20041129
  Serious: No
  Sender: FDA-Public Use
  Company Number: None

PATIENT
  Age: 70 Year
  Sex: Male
  Weight: 73.0291 kg

DRUGS (1)
  1. VALDECOXIB [Suspect]
     Indication: SPINAL OSTEOARTHRITIS
     Dosage: 10 MGS BID PO
     Route: 048
     Dates: start: 20040201, end: 20040215

REACTIONS (1)
  - HYPERTRIGLYCERIDAEMIA [None]
